FAERS Safety Report 15714128 (Version 1)
Quarter: 2018Q4

REPORT INFORMATION
  Report Type: Spontaneous
  Country: US (occurrence: US)
  Receive Date: 20181212
  Receipt Date: 20181212
  Transmission Date: 20190205
  Serious: No
  Sender: FDA-Public Use
  Company Number: US-ENDO PHARMACEUTICALS INC-2018-042543

PATIENT
  Sex: Male
  Weight: 108.84 kg

DRUGS (4)
  1. TESTIM [Suspect]
     Active Substance: TESTOSTERONE
     Indication: BLOOD TESTOSTERONE DECREASED
     Dosage: UNK UNKNOWN, UNKNOWN
     Route: 062
     Dates: start: 2013, end: 20181019
  2. SYMBICORT [Concomitant]
     Active Substance: BUDESONIDE\FORMOTEROL FUMARATE DIHYDRATE
     Indication: PRODUCT USED FOR UNKNOWN INDICATION
  3. TESTIM [Suspect]
     Active Substance: TESTOSTERONE
     Indication: BLOOD TESTOSTERONE DECREASED
     Dosage: UNK APPLY TO ABDOMEN
     Route: 062
     Dates: start: 2009, end: 2013
  4. TESTIM [Suspect]
     Active Substance: TESTOSTERONE
     Dosage: UNK, APPLY TO SHOULDER OR UPPER ARMS AND ABDOMENUNK
     Route: 062
     Dates: start: 20181019

REACTIONS (4)
  - Product quality issue [Unknown]
  - Product administered at inappropriate site [Unknown]
  - Fatigue [Unknown]
  - Drug effect decreased [Unknown]

NARRATIVE: CASE EVENT DATE: 2009
